FAERS Safety Report 10847331 (Version 1)
Quarter: 2015Q1

REPORT INFORMATION
  Report Type: Spontaneous
  Country: BR (occurrence: BR)
  Receive Date: 20150220
  Receipt Date: 20150220
  Transmission Date: 20150721
  Serious: Yes (Hospitalization, Other)
  Sender: FDA-Public Use
  Company Number: BR-ABBVIE-15P-020-1350024-00

PATIENT
  Sex: Female

DRUGS (4)
  1. DEPAKOTE [Suspect]
     Active Substance: DIVALPROEX SODIUM
     Indication: PRODUCT USED FOR UNKNOWN INDICATION
     Route: 065
     Dates: start: 2010
  2. ANALGESICS [Concomitant]
     Active Substance: UNSPECIFIED INGREDIENT
     Indication: PRODUCT USED FOR UNKNOWN INDICATION
     Dosage: STARTED AFTER THE SURGERY IN 2013
     Dates: start: 2013
  3. DEPAKOTE [Suspect]
     Active Substance: DIVALPROEX SODIUM
     Route: 065
  4. DORMONID [Concomitant]
     Indication: PREOPERATIVE CARE
     Dates: start: 2013

REACTIONS (9)
  - Drug effect decreased [Unknown]
  - Haemangioma [Unknown]
  - Vomiting [Unknown]
  - Headache [Unknown]
  - Hypoaesthesia [Unknown]
  - Insomnia [Unknown]
  - Hypoaesthesia oral [Unknown]
  - Nausea [Unknown]
  - Syncope [Unknown]

NARRATIVE: CASE EVENT DATE: 201212
